FAERS Safety Report 9933132 (Version 1)
Quarter: 2014Q1

REPORT INFORMATION
  Report Type: Spontaneous
  Country: US (occurrence: US)
  Receive Date: 20140228
  Receipt Date: 20140228
  Transmission Date: 20141002
  Serious: No
  Sender: FDA-Public Use
  Company Number: US-GLAXOSMITHKLINE-A1050313A

PATIENT
  Age: 24 Year
  Sex: Female
  Weight: 57.5 kg

DRUGS (2)
  1. LAMICTAL [Suspect]
     Indication: CONVULSION
     Dosage: 150MG UNKNOWN
     Route: 065
     Dates: start: 20110721
  2. PRENATAL VITAMINS [Concomitant]

REACTIONS (3)
  - High risk pregnancy [Unknown]
  - Live birth [Unknown]
  - Exposure during pregnancy [Unknown]
